FAERS Safety Report 21107727 (Version 1)
Quarter: 2022Q3

REPORT INFORMATION
  Report Type: Spontaneous
  Country: CO (occurrence: CO)
  Receive Date: 20220720
  Receipt Date: 20220720
  Transmission Date: 20221027
  Serious: Yes (Hospitalization)
  Sender: FDA-Public Use
  Company Number: CO-002147023-NVSC2022CO156880

PATIENT

DRUGS (2)
  1. RUXOLITINIB [Suspect]
     Active Substance: RUXOLITINIB
     Indication: Graft versus host disease in gastrointestinal tract
     Dosage: UNK
     Route: 065
  2. GANCICLOVIR [Concomitant]
     Active Substance: GANCICLOVIR
     Indication: Cytomegalovirus test positive
     Dosage: UNK
     Route: 065

REACTIONS (4)
  - Graft versus host disease in liver [Unknown]
  - Disease progression [Unknown]
  - Graft versus host disease in gastrointestinal tract [Unknown]
  - Product use in unapproved indication [Unknown]
